FAERS Safety Report 11173418 (Version 2)
Quarter: 2015Q2

REPORT INFORMATION
  Report Type: Report from Study
  Country: DE (occurrence: DE)
  Receive Date: 20150609
  Receipt Date: 20150617
  Transmission Date: 20150821
  Serious: Yes (Hospitalization)
  Sender: FDA-Public Use
  Company Number: GXKR2015DE002653

PATIENT
  Age: 81 Year
  Weight: 70 kg

DRUGS (2)
  1. LEUPRONE HEXAL [Suspect]
     Active Substance: LEUPROLIDE ACETATE
     Dosage: 5 MG, Q3MO
     Route: 058
     Dates: start: 20141217
  2. LEUPRONE HEXAL [Suspect]
     Active Substance: LEUPROLIDE ACETATE
     Indication: PROSTATE CANCER
     Dosage: 5 MG, Q3MO
     Route: 058
     Dates: start: 20140922

REACTIONS (3)
  - Prostate cancer [Recovering/Resolving]
  - Prostatic specific antigen increased [Recovering/Resolving]
  - Drug ineffective [Recovering/Resolving]

NARRATIVE: CASE EVENT DATE: 20141219
